FAERS Safety Report 10606220 (Version 2)
Quarter: 2014Q4

REPORT INFORMATION
  Report Type: Spontaneous
  Country: GB (occurrence: None)
  Receive Date: 20141121
  Receipt Date: 20141204
  Transmission Date: 20150529
  Serious: Yes (Hospitalization)
  Sender: FDA-Public Use
  Company Number: FK201405333

PATIENT
  Age: 75 Year
  Sex: Female

DRUGS (8)
  1. CARBIMAZOLE (CARBIMAZOLE) (CARBIMAZOLE) [Concomitant]
     Active Substance: CARBIMAZOLE
  2. FUROSEMIDE. [Suspect]
     Active Substance: FUROSEMIDE
     Indication: LEFT VENTRICULAR HYPERTROPHY
     Dosage: 40 MG, 1 IN 1 D, ORAL
     Route: 048
     Dates: end: 20121205
  3. RAMIPRIL. [Suspect]
     Active Substance: RAMIPRIL
     Indication: LEFT VENTRICULAR HYPERTROPHY
     Dosage: 2.5 MG, 1 IN 1 D, ORAL
     Route: 048
     Dates: end: 20121205
  4. DIGOXIN (DIGOXIN) [Concomitant]
     Active Substance: DIGOXIN
  5. SPIRONOLACTONE. [Suspect]
     Active Substance: SPIRONOLACTONE
     Indication: LEFT VENTRICULAR HYPERTROPHY
     Dosage: 50 MG,  1 IN 1 D, ORAL
     Route: 048
     Dates: end: 20121205
  6. LANSOPRAZOLE (LANSOPRAZOLE) [Concomitant]
     Active Substance: LANSOPRAZOLE
  7. WARFARIN SODIUM (WARFARIN SODIUM) [Concomitant]
     Active Substance: WARFARIN SODIUM
  8. BISOPROLOL FUMARATE (BISOPROLOL FUMARATE) [Concomitant]

REACTIONS (4)
  - Pneumothorax [None]
  - Pleural effusion [None]
  - Acute kidney injury [None]
  - Dyspnoea [None]

NARRATIVE: CASE EVENT DATE: 20121205
